FAERS Safety Report 9624880 (Version 1)
Quarter: 2013Q4

REPORT INFORMATION
  Report Type: Spontaneous
  Country: US (occurrence: US)
  Receive Date: 20131016
  Receipt Date: 20131016
  Transmission Date: 20140711
  Serious: Yes (Hospitalization)
  Sender: FDA-Public Use
  Company Number: US-PFIZER INC-2013290904

PATIENT
  Age: 36 Year
  Sex: Female

DRUGS (2)
  1. LEVOTHYROXINE SODIUM [Suspect]
     Indication: POST PROCEDURAL HYPOTHYROIDISM
     Dosage: 300 UG, UNK
  2. LEVOTHYROXINE SODIUM [Suspect]
     Dosage: 150 UG, UNK

REACTIONS (1)
  - Thyrotoxic crisis [Recovering/Resolving]
